FAERS Safety Report 19500105 (Version 1)
Quarter: 2021Q3

REPORT INFORMATION
  Report Type: Spontaneous
  Country: AU (occurrence: AU)
  Receive Date: 20210706
  Receipt Date: 20210706
  Transmission Date: 20211014
  Serious: Yes (Other)
  Sender: FDA-Public Use
  Company Number: AU-PFIZER INC-2021821334

PATIENT
  Age: 78 Year
  Sex: Female

DRUGS (2)
  1. LIDOCAINE HCL [Suspect]
     Active Substance: LIDOCAINE HYDROCHLORIDE
  2. BUFEXAMAC [Suspect]
     Active Substance: BUFEXAMAC
     Dosage: UNK
     Route: 061

REACTIONS (2)
  - Rash erythematous [Recovered/Resolved]
  - Dermatitis contact [Recovered/Resolved]
